FAERS Safety Report 12671374 (Version 1)
Quarter: 2016Q3

REPORT INFORMATION
  Report Type: Spontaneous
  Country: US (occurrence: US)
  Receive Date: 20160822
  Receipt Date: 20160822
  Transmission Date: 20161109
  Serious: No
  Sender: FDA-Public Use
  Company Number: US-TEVA-680938USA

PATIENT
  Age: 63 Year
  Sex: Female
  Weight: 90.7 kg

DRUGS (4)
  1. FEXOFENADINE [Suspect]
     Active Substance: FEXOFENADINE\FEXOFENADINE HYDROCHLORIDE
     Indication: EYE PRURITUS
  2. FEXOFENADINE [Suspect]
     Active Substance: FEXOFENADINE\FEXOFENADINE HYDROCHLORIDE
     Indication: RHINORRHOEA
     Dosage: 180 MILLIGRAM DAILY;
     Route: 048
     Dates: start: 201601, end: 20160722
  3. FEXOFENADINE [Suspect]
     Active Substance: FEXOFENADINE\FEXOFENADINE HYDROCHLORIDE
     Indication: LACRIMATION INCREASED
  4. ARMOUR THYROID [Interacting]
     Active Substance: THYROID, PORCINE
     Indication: HYPOTHYROIDISM
     Route: 048
     Dates: start: 2010

REACTIONS (4)
  - Tri-iodothyronine decreased [Unknown]
  - Blood thyroid stimulating hormone increased [Unknown]
  - Thyroxine decreased [Unknown]
  - Drug interaction [Recovered/Resolved]

NARRATIVE: CASE EVENT DATE: 201601
